FAERS Safety Report 21892993 (Version 2)
Quarter: 2023Q2

REPORT INFORMATION
  Report Type: Report from Study
  Country: US (occurrence: US)
  Receive Date: 20230120
  Receipt Date: 20230518
  Transmission Date: 20230722
  Serious: Yes (Hospitalization, Other)
  Sender: FDA-Public Use
  Company Number: US-JAZZ-2022-US-036887

PATIENT
  Age: 29 Year
  Sex: Female

DRUGS (4)
  1. XYREM [Suspect]
     Active Substance: SODIUM OXYBATE
     Indication: Narcolepsy
     Dosage: 4.25 GRAM, BID
     Route: 048
     Dates: start: 20220404, end: 20221130
  2. ADDERALL [Concomitant]
     Active Substance: AMPHETAMINE ASPARTATE\AMPHETAMINE SULFATE\DEXTROAMPHETAMINE SACCHARATE\DEXTROAMPHETAMINE SULFATE
     Indication: Somnolence
     Dosage: UNK
     Dates: start: 20220202
  3. LEVOTHYROXINE [Concomitant]
     Active Substance: LEVOTHYROXINE
     Indication: Product used for unknown indication
     Dosage: UNK
     Dates: start: 20220210
  4. GEMTESA [Concomitant]
     Active Substance: VIBEGRON
     Indication: Product used for unknown indication
     Dosage: UNK
     Dates: start: 20221001

REACTIONS (11)
  - Suicide attempt [Recovered/Resolved]
  - Overdose [Unknown]
  - Impulsive behaviour [Unknown]
  - Stress [Unknown]
  - Depression [Unknown]
  - Cystitis interstitial [Unknown]
  - Endometriosis [Unknown]
  - Anxiety [Recovering/Resolving]
  - Decreased appetite [Recovering/Resolving]
  - Headache [Unknown]
  - Affect lability [Unknown]

NARRATIVE: CASE EVENT DATE: 20220601
